FAERS Safety Report 5321472-4 (Version None)
Quarter: 2007Q2

REPORT INFORMATION
  Report Type: 
  Country: None (occurrence: None)
  Receive Date: 20070510
  Receipt Date: 20070504
  Transmission Date: 20071010
  Serious: Yes (Other)
  Sender: FDA-Public Use
  Company Number: B0469956A

PATIENT
  Age: 18 Year
  Sex: Female

DRUGS (2)
  1. LAMOTRIGINE [Suspect]
     Indication: DRUG USE FOR UNKNOWN INDICATION
     Dosage: 200MG PER DAY
  2. XENICAL [Concomitant]
     Indication: OBESITY
     Dosage: 360MG PER DAY

REACTIONS (4)
  - ANTICONVULSANT DRUG LEVEL [None]
  - CONVULSION [None]
  - DRUG INTERACTION [None]
  - MALABSORPTION [None]
